FAERS Safety Report 4707263-3 (Version None)
Quarter: 2005Q3

REPORT INFORMATION
  Report Type: 
  Country: None (occurrence: None)
  Receive Date: 20050701
  Receipt Date: 20050623
  Transmission Date: 20060218
  Serious: Yes (Hospitalization)
  Sender: FDA-Public Use
  Company Number: 2005-04-0211

PATIENT
  Age: 68 Year
  Sex: Male
  Weight: 54 kg

DRUGS (2)
  1. PEG-INTRON [Suspect]
     Indication: HEPATITIS C
     Dosage: 80 MCG QW SUBCUTANEOUS
     Route: 058
     Dates: start: 20041215, end: 20050202
  2. REBETOL [Suspect]
     Indication: HEPATITIS C
     Dosage: 600 MG ORAL
     Route: 048
     Dates: start: 20041215, end: 20050202

REACTIONS (10)
  - CEREBRAL ATHEROSCLEROSIS [None]
  - CEREBRAL INFARCTION [None]
  - CEREBRAL THROMBOSIS [None]
  - CHOKING [None]
  - DYSARTHRIA [None]
  - DYSPHAGIA [None]
  - HYPERTENSION [None]
  - HYPOAESTHESIA [None]
  - PARESIS [None]
  - SPEECH DISORDER [None]
